FAERS Safety Report 7085474-2 (Version None)
Quarter: 2010Q4

REPORT INFORMATION
  Report Type: 
  Country: None (occurrence: None)
  Receive Date: 20101105
  Receipt Date: 20101026
  Transmission Date: 20110411
  Serious: Yes (Other)
  Sender: FDA-Public Use
  Company Number: JP-PFIZER INC-2010135621

PATIENT
  Age: 35 Year
  Sex: Male

DRUGS (1)
  1. SOLANAX [Suspect]
     Route: 048

REACTIONS (2)
  - ALTERED VISUAL DEPTH PERCEPTION [None]
  - HYPERMETROPIA [None]
